FAERS Safety Report 14145334 (Version 1)
Quarter: 2017Q4

REPORT INFORMATION
  Report Type: Other
  Country: US (occurrence: US)
  Receive Date: 20171031
  Receipt Date: 20171031
  Transmission Date: 20180321
  Serious: Yes (Hospitalization, Other)
  Sender: FDA-Public Use
  Company Number: US-VELOXIS PHARMACEUTICALS-2032835

PATIENT
  Age: 52 Year
  Sex: Male

DRUGS (11)
  1. VALGANCICLOVIR HYDROCHLORIDE. [Suspect]
     Active Substance: VALGANCICLOVIR HYDROCHLORIDE
  2. TRIMETHOPRIM SULFAMETHOXAZOLE [Suspect]
     Active Substance: SULFAMETHOXAZOLE\TRIMETHOPRIM
  3. MYCOPHENOLATE MOFETIL. [Suspect]
     Active Substance: MYCOPHENOLATE MOFETIL
  4. BASILIXIMAB [Suspect]
     Active Substance: BASILIXIMAB
  5. LEDIPASVIR [Suspect]
     Active Substance: LEDIPASVIR
  6. METHYLPREDNISOLONE. [Suspect]
     Active Substance: METHYLPREDNISOLONE
  7. ENVARSUS XR [Suspect]
     Active Substance: TACROLIMUS
     Route: 065
  8. PREDNISONE. [Suspect]
     Active Substance: PREDNISONE
  9. PREDNISONE. [Suspect]
     Active Substance: PREDNISONE
  10. ENVARSUS XR [Suspect]
     Active Substance: TACROLIMUS
     Indication: LIVER TRANSPLANT
     Route: 065
  11. SOFOSBUVIR [Suspect]
     Active Substance: SOFOSBUVIR

REACTIONS (9)
  - Pneumonia [Unknown]
  - Nausea [Unknown]
  - Intentional product use issue [Unknown]
  - Depression [Unknown]
  - Clostridium difficile colitis [Unknown]
  - Babesiosis [Recovered/Resolved]
  - Enterococcal infection [Unknown]
  - Renal failure [Unknown]
  - Intentional product misuse [Unknown]
